FAERS Safety Report 7209997-8 (Version None)
Quarter: 2011Q1

REPORT INFORMATION
  Report Type: 
  Country: None (occurrence: None)
  Receive Date: 20110105
  Receipt Date: 20101221
  Transmission Date: 20110831
  Serious: No
  Sender: FDA-Public Use
  Company Number: US-BIOGENIDEC-2011BI000047

PATIENT
  Age: 52 Year
  Sex: Female

DRUGS (2)
  1. TYSABRI [Suspect]
     Indication: MULTIPLE SCLEROSIS
     Route: 042
     Dates: start: 20100618
  2. TYSABRI [Suspect]
     Route: 042
     Dates: start: 20090911, end: 20100507

REACTIONS (5)
  - TOOTH DISORDER [None]
  - GINGIVITIS [None]
  - GINGIVAL PAIN [None]
  - CONTUSION [None]
  - URINARY INCONTINENCE [None]
